FAERS Safety Report 16954333 (Version 1)
Quarter: 2019Q4

REPORT INFORMATION
  Report Type: Spontaneous
  Country: US (occurrence: US)
  Receive Date: 20191023
  Receipt Date: 20191023
  Transmission Date: 20200122
  Serious: No
  Sender: FDA-Public Use
  Company Number: US-ABBVIE-19S-163-2667018-00

PATIENT
  Age: 48 Year
  Sex: Female
  Weight: 69.4 kg

DRUGS (2)
  1. IBRANCE [Suspect]
     Active Substance: PALBOCICLIB
     Indication: BREAST CANCER
     Dosage: 125MG ONE CAPSULE BY MOUTH DAILY FOR 21 DAYS AND THEN OFF FOR 7 DAYS
     Route: 048
     Dates: start: 201806
  2. LUPRON DEPOT [Suspect]
     Active Substance: LEUPROLIDE ACETATE
     Indication: PRODUCT USED FOR UNKNOWN INDICATION
     Route: 065

REACTIONS (5)
  - White blood cell count abnormal [Unknown]
  - White blood cell count decreased [Unknown]
  - Artificial menopause [Unknown]
  - Bone density decreased [Unknown]
  - Neutrophil count abnormal [Unknown]

NARRATIVE: CASE EVENT DATE: 20180627
